FAERS Safety Report 11350397 (Version 1)
Quarter: 2015Q3

REPORT INFORMATION
  Report Type: Spontaneous
  Country: US (occurrence: None)
  Receive Date: 20150805
  Receipt Date: 20150805
  Transmission Date: 20151125
  Serious: No
  Sender: FDA-Public Use
  Company Number: None

PATIENT
  Age: 87 Year
  Sex: Male

DRUGS (1)
  1. LIDOCAINE. [Suspect]
     Active Substance: LIDOCAINE
     Indication: VENTRICULAR TACHYCARDIA
     Route: 042
     Dates: start: 20141122, end: 20141122

REACTIONS (2)
  - Abdominal pain [None]
  - Diplopia [None]

NARRATIVE: CASE EVENT DATE: 20141122
